FAERS Safety Report 11326366 (Version 1)
Quarter: 2015Q3

REPORT INFORMATION
  Report Type: Spontaneous
  Country: CH (occurrence: CH)
  Receive Date: 20150731
  Receipt Date: 20150731
  Transmission Date: 20151125
  Serious: Yes (Death)
  Sender: FDA-Public Use
  Company Number: CH-CIPLA LTD.-2015CH06011

PATIENT

DRUGS (17)
  1. DIAZEPAM. [Suspect]
     Active Substance: DIAZEPAM
     Dosage: UNK
     Route: 065
  2. TRAZODONE [Suspect]
     Active Substance: TRAZODONE HYDROCHLORIDE
     Dosage: UNK
     Route: 065
  3. 7?AMINOFLUNITRAZEPAM [Suspect]
     Active Substance: 7-AMINOFLUNITRAZEPAM
     Route: 065
  4. METOCLOPRAMIDE. [Suspect]
     Active Substance: METOCLOPRAMIDE
  5. PENTOBARBITAL. [Suspect]
     Active Substance: PENTOBARBITAL
     Dosage: UNK
     Route: 065
  6. ZOLPIDEM TARTARATE [Suspect]
     Active Substance: ZOLPIDEM TARTRATE
     Dosage: UNK
     Route: 065
  7. TRAMADOL. [Suspect]
     Active Substance: TRAMADOL
     Route: 065
  8. FLUNITRAZEPAM [Suspect]
     Active Substance: FLUNITRAZEPAM
     Route: 065
  9. METAMIZOLE [Suspect]
     Active Substance: METAMIZOLE
     Route: 065
  10. CITALOPRAM [Suspect]
     Active Substance: CITALOPRAM HYDROBROMIDE
     Route: 065
  11. BUTALBITAL [Suspect]
     Active Substance: BUTALBITAL
     Route: 065
  12. BISOPROLOL [Suspect]
     Active Substance: BISOPROLOL
     Route: 065
  13. ETHANOL [Suspect]
     Active Substance: ALCOHOL
     Route: 065
  14. PROPYPHENAZONE [Suspect]
     Active Substance: PROPYPHENAZONE
     Route: 065
  15. LOPERAMIDE [Suspect]
     Active Substance: LOPERAMIDE
     Route: 065
  16. DEXTROMETHORPHAN [Suspect]
     Active Substance: DEXTROMETHORPHAN
     Route: 065
  17. NORDAZEPAM [Suspect]
     Active Substance: NORDAZEPAM
     Route: 065

REACTIONS (2)
  - Completed suicide [Fatal]
  - Overdose [Fatal]
